FAERS Safety Report 21617948 (Version 1)
Quarter: 2022Q4

REPORT INFORMATION
  Report Type: Spontaneous
  Country: US (occurrence: US)
  Receive Date: 20221119
  Receipt Date: 20221119
  Transmission Date: 20230113
  Serious: Yes (Hospitalization)
  Sender: FDA-Public Use
  Company Number: US-TEVA-2022-US-2827077

PATIENT

DRUGS (1)
  1. LIDOCAINE [Suspect]
     Active Substance: LIDOCAINE
     Indication: Product used for unknown indication
     Dosage: STRENGTH: 5 PERCENT
     Route: 062

REACTIONS (4)
  - Atrial fibrillation [Unknown]
  - Cardiac fibrillation [Unknown]
  - Product physical issue [Unknown]
  - Device difficult to use [Unknown]
